FAERS Safety Report 25759305 (Version 1)
Quarter: 2025Q3

REPORT INFORMATION
  Report Type: Spontaneous
  Country: EU (occurrence: EU)
  Receive Date: 20250904
  Receipt Date: 20250904
  Transmission Date: 20251021
  Serious: Yes (Death)
  Sender: DOUGLAS PHARMACEUTICALS
  Company Number: EU-DOUGLAS PHARMACEUTICALS US-2025DGL00314

PATIENT
  Age: 22 Year
  Sex: Male

DRUGS (7)
  1. CLOZAPINE [Suspect]
     Active Substance: CLOZAPINE
     Indication: Antipsychotic therapy
  2. PAROXETINE [Suspect]
     Active Substance: PAROXETINE
     Indication: Major depression
  3. PAROXETINE [Suspect]
     Active Substance: PAROXETINE
     Indication: Panic disorder
  4. QUETIAPINE [Suspect]
     Active Substance: QUETIAPINE
     Indication: Major depression
  5. QUETIAPINE [Suspect]
     Active Substance: QUETIAPINE
     Indication: Panic disorder
  6. ALPRAZOLAM [Suspect]
     Active Substance: ALPRAZOLAM
     Indication: Major depression
  7. ALPRAZOLAM [Suspect]
     Active Substance: ALPRAZOLAM
     Indication: Panic disorder

REACTIONS (1)
  - Toxicity to various agents [Fatal]
